FAERS Safety Report 6441968-1 (Version None)
Quarter: 2009Q4

REPORT INFORMATION
  Report Type: 
  Country: None (occurrence: None)
  Receive Date: 20091116
  Receipt Date: 20091106
  Transmission Date: 20100525
  Serious: Yes (Hospitalization, Other)
  Sender: FDA-Public Use
  Company Number: CA-ABBOTT-09P-028-0607704-00

PATIENT
  Sex: Male
  Weight: 70.37 kg

DRUGS (2)
  1. HUMIRA [Suspect]
     Indication: ANKYLOSING SPONDYLITIS
     Route: 058
     Dates: start: 20090630
  2. CELEBREX [Concomitant]
     Indication: DRUG USE FOR UNKNOWN INDICATION

REACTIONS (9)
  - ABDOMINAL PAIN UPPER [None]
  - BLISTER [None]
  - BLISTER INFECTED [None]
  - BLOOD URINE PRESENT [None]
  - DYSURIA [None]
  - ERYTHEMA [None]
  - LIP BLISTER [None]
  - SECRETION DISCHARGE [None]
  - TESTICULAR SWELLING [None]
